FAERS Safety Report 23636130 (Version 2)
Quarter: 2024Q1

REPORT INFORMATION
  Report Type: Spontaneous
  Country: BE (occurrence: BE)
  Receive Date: 20240315
  Receipt Date: 20240325
  Transmission Date: 20240410
  Serious: No
  Sender: FDA-Public Use
  Company Number: BE-002147023-NVSC2024BE050824

PATIENT
  Age: 45 Year
  Sex: Female

DRUGS (1)
  1. TRAMETINIB [Suspect]
     Active Substance: TRAMETINIB
     Indication: Erdheim-Chester disease
     Dosage: UNK
     Route: 065

REACTIONS (3)
  - Dermatitis acneiform [Unknown]
  - Product use in unapproved indication [Unknown]
  - Therapy partial responder [Unknown]
